FAERS Safety Report 24785984 (Version 1)
Quarter: 2024Q4

REPORT INFORMATION
  Report Type: Other
  Country: LB (occurrence: LB)
  Receive Date: 20241229
  Receipt Date: 20241229
  Transmission Date: 20250115
  Serious: Yes (Other)
  Sender: DENTSPLY
  Company Number: LB-DENTSPLY-2024SCDP000369

PATIENT
  Age: 59 Year
  Sex: Female

DRUGS (1)
  1. LIDOCAINE HYDROCHLORIDE AND EPINEPHRINE BITARTRATE [Suspect]
     Active Substance: EPINEPHRINE BITARTRATE\LIDOCAINE HYDROCHLORIDE
     Indication: Dental local anaesthesia
     Dosage: UNK DOSE OF PERSOCAINE INJECTION (PFT) (AN INFERIOR ALVEOLAR NERVE BLOCK WAS PERFORMED TWICE (AROUND

REACTIONS (3)
  - Contusion [Unknown]
  - Trismus [Recovered/Resolved]
  - Face oedema [Recovered/Resolved]
